FAERS Safety Report 6097779-2 (Version None)
Quarter: 2009Q1

REPORT INFORMATION
  Report Type: 
  Country: None (occurrence: None)
  Receive Date: 20090227
  Receipt Date: 20090217
  Transmission Date: 20090719
  Serious: Yes (Hospitalization)
  Sender: FDA-Public Use
  Company Number: US-ABBOTT-08P-163-0438861-00

PATIENT
  Sex: Male
  Weight: 104.87 kg

DRUGS (9)
  1. HUMIRA [Suspect]
     Indication: CROHN'S DISEASE
  2. PREVACID [Suspect]
     Indication: DRUG USE FOR UNKNOWN INDICATION
     Route: 065
  3. INFLIXIMAB [Suspect]
     Indication: CROHN'S DISEASE
     Route: 042
     Dates: start: 19990617
  4. INFLIXIMAB [Suspect]
     Dates: start: 19991116
  5. INFLIXIMAB [Suspect]
     Dates: start: 20010118
  6. INFLIXIMAB [Suspect]
     Dates: start: 20010806
  7. BUDESONIDE [Suspect]
     Indication: DRUG USE FOR UNKNOWN INDICATION
     Route: 065
  8. VITAMIN B-12 [Suspect]
     Indication: CROHN'S DISEASE
  9. QUESTRAN [Suspect]
     Indication: CROHN'S DISEASE

REACTIONS (5)
  - ABDOMINAL PAIN [None]
  - ASTHENIA [None]
  - DEHYDRATION [None]
  - DIARRHOEA [None]
  - MUSCLE SPASMS [None]
